FAERS Safety Report 13213999 (Version 1)
Quarter: 2017Q1

REPORT INFORMATION
  Report Type: Report from Study
  Country: CA (occurrence: CA)
  Receive Date: 20170210
  Receipt Date: 20170210
  Transmission Date: 20170428
  Serious: No
  Sender: FDA-Public Use
  Company Number: CA-HLSUS-2016-CA-000731

PATIENT
  Age: 69 Year
  Sex: Female

DRUGS (4)
  1. ARIPIPRAZOLE. [Concomitant]
     Active Substance: ARIPIPRAZOLE
  2. DIVALPROEX [Concomitant]
     Active Substance: DIVALPROEX SODIUM
  3. OLANZAPINE. [Concomitant]
     Active Substance: OLANZAPINE
  4. CLOZARIL [Suspect]
     Active Substance: CLOZAPINE
     Indication: MANIA
     Dosage: 50 MG
     Route: 048
     Dates: start: 20161114, end: 20161212

REACTIONS (2)
  - Sedation [Unknown]
  - Fatigue [Unknown]

NARRATIVE: CASE EVENT DATE: 20161115
